FAERS Safety Report 9642755 (Version 1)
Quarter: 2013Q4

REPORT INFORMATION
  Report Type: Spontaneous
  Country: US (occurrence: US)
  Receive Date: 20131024
  Receipt Date: 20131024
  Transmission Date: 20140711
  Serious: Yes (Other)
  Sender: FDA-Public Use
  Company Number: US-AMGEN-USASP2013074203

PATIENT
  Age: 58 Year
  Sex: Male

DRUGS (1)
  1. ENBREL [Suspect]
     Indication: RHEUMATOID ARTHRITIS
     Dosage: 50 MG EVERY 5 DAYS
     Route: 065
     Dates: start: 20060601

REACTIONS (8)
  - Neuropathy peripheral [Not Recovered/Not Resolved]
  - Diabetic ulcer [Recovered/Resolved]
  - Meniscus operation [Not Recovered/Not Resolved]
  - Diabetes mellitus [Recovered/Resolved]
  - Infected skin ulcer [Recovered/Resolved]
  - Gait disturbance [Not Recovered/Not Resolved]
  - Arthralgia [Not Recovered/Not Resolved]
  - Injection site haemorrhage [Not Recovered/Not Resolved]
